FAERS Safety Report 19519183 (Version 1)
Quarter: 2021Q3

REPORT INFORMATION
  Report Type: Spontaneous
  Country: US (occurrence: US)
  Receive Date: 20210712
  Receipt Date: 20210712
  Transmission Date: 20211014
  Serious: Yes (Other)
  Sender: FDA-Public Use
  Company Number: US-GLAXOSMITHKLINE-US2021GSK146072

PATIENT
  Sex: Male

DRUGS (10)
  1. ZANTAC [Suspect]
     Active Substance: RANITIDINE HYDROCHLORIDE
     Indication: FLATULENCE
  2. RANITIDINE. [Suspect]
     Active Substance: RANITIDINE
     Indication: FLATULENCE
  3. ZANTAC [Suspect]
     Active Substance: RANITIDINE HYDROCHLORIDE
     Indication: ABDOMINAL DISCOMFORT
     Dosage: 75 MG, QD
     Route: 065
     Dates: start: 198501, end: 201001
  4. ZANTAC [Suspect]
     Active Substance: RANITIDINE HYDROCHLORIDE
     Indication: FLATULENCE
  5. RANITIDINE CAPSULE [Suspect]
     Active Substance: RANITIDINE
     Indication: ABDOMINAL DISCOMFORT
     Dosage: 75 MG, QD
     Route: 065
     Dates: start: 198501, end: 201001
  6. RANITIDINE CAPSULE [Suspect]
     Active Substance: RANITIDINE
     Indication: FLATULENCE
  7. ZANTAC [Suspect]
     Active Substance: RANITIDINE HYDROCHLORIDE
     Indication: ABDOMINAL DISCOMFORT
     Dosage: 75 MG, QD
     Route: 065
     Dates: start: 198501, end: 201001
  8. ZANTAC [Suspect]
     Active Substance: RANITIDINE HYDROCHLORIDE
     Indication: ABDOMINAL DISCOMFORT
     Dosage: 75 MG, QD
     Route: 065
     Dates: start: 198501, end: 201001
  9. ZANTAC [Suspect]
     Active Substance: RANITIDINE HYDROCHLORIDE
     Indication: FLATULENCE
  10. RANITIDINE. [Suspect]
     Active Substance: RANITIDINE
     Indication: ABDOMINAL DISCOMFORT
     Dosage: UNK
     Route: 065
     Dates: start: 198501, end: 201001

REACTIONS (1)
  - Gastric cancer [Unknown]
